FAERS Safety Report 4820781-2 (Version None)
Quarter: 2005Q4

REPORT INFORMATION
  Report Type: 
  Country: None (occurrence: None)
  Receive Date: 20051103
  Receipt Date: 20051103
  Transmission Date: 20060501
  Serious: Yes (Life-Threatening)
  Sender: FDA-Public Use
  Company Number: None

PATIENT
  Age: 60 Year
  Sex: Male
  Weight: 65.7716 kg

DRUGS (3)
  1. HALLS DEFENSE MULTI-BLEND     WARNER-LAMBERT [Suspect]
     Indication: NASOPHARYNGITIS
     Dosage: 2 PILLS TOTAL    ONE PILL TAKEN TWO
     Dates: start: 20051101, end: 20051101
  2. INDERAL [Concomitant]
  3. IMDUR [Concomitant]

REACTIONS (3)
  - ADVERSE DRUG REACTION [None]
  - DYSPNOEA [None]
  - OESOPHAGEAL OBSTRUCTION [None]
